FAERS Safety Report 24162298 (Version 1)
Quarter: 2024Q3

REPORT INFORMATION
  Report Type: Spontaneous
  Country: US (occurrence: None)
  Receive Date: 20240731
  Receipt Date: 20240731
  Transmission Date: 20241017
  Serious: Yes (Life-Threatening, Disabling)
  Sender: Public
  Company Number: None

PATIENT
  Age: 41 Year
  Sex: Female
  Weight: 54 kg

DRUGS (2)
  1. KEPPRA [Suspect]
     Active Substance: LEVETIRACETAM
     Indication: Generalised tonic-clonic seizure
     Dosage: 2 CAPSULES TWICE A DAY ORAL?
     Route: 048
     Dates: start: 20240603
  2. KEPPRA [Suspect]
     Active Substance: LEVETIRACETAM
     Indication: COVID-19

REACTIONS (21)
  - Gastrointestinal pain [None]
  - Gastrointestinal pain [None]
  - Micturition urgency [None]
  - Enuresis [None]
  - Abnormal behaviour [None]
  - Depression [None]
  - Renal pain [None]
  - Chromaturia [None]
  - Chromaturia [None]
  - Rash pustular [None]
  - Acarodermatitis [None]
  - Abscess bacterial [None]
  - Scar [None]
  - Skin exfoliation [None]
  - Influenza like illness [None]
  - Supraventricular tachycardia [None]
  - Withdrawal syndrome [None]
  - Seizure [None]
  - Tremor [None]
  - Tic [None]
  - Brief resolved unexplained event [None]

NARRATIVE: CASE EVENT DATE: 20240610
